FAERS Safety Report 10389724 (Version 2)
Quarter: 2014Q4

REPORT INFORMATION
  Report Type: Spontaneous
  Country: US (occurrence: None)
  Receive Date: 20140813
  Receipt Date: 20141014
  Transmission Date: 20150528
  Serious: Yes (Other)
  Sender: FDA-Public Use
  Company Number: KAD201407-000802

PATIENT
  Age: 63 Year
  Sex: Female

DRUGS (2)
  1. RIBASPHERE RIBAPAK [Suspect]
     Active Substance: RIBAVIRIN
     Indication: HEPATITIS C
     Dosage: 600 MG AM AND 400 MG PM: 1000MG/DAY, ORAL
     Route: 048
     Dates: start: 20140604, end: 20140827
  2. SOVALDI [Suspect]
     Active Substance: SOFOSBUVIR
     Indication: HEPATITIS C
     Route: 048
     Dates: start: 20140604, end: 20140827

REACTIONS (5)
  - Depression [None]
  - Anaemia [None]
  - Fatigue [None]
  - Irritability [None]
  - Genital herpes [None]

NARRATIVE: CASE EVENT DATE: 20140728
